FAERS Safety Report 22609303 (Version 1)
Quarter: 2023Q2

REPORT INFORMATION
  Report Type: Spontaneous
  Country: US (occurrence: None)
  Receive Date: 20230615
  Receipt Date: 20230615
  Transmission Date: 20230722
  Serious: No
  Sender: FDA-Public Use
  Company Number: None

PATIENT
  Age: 62 Year
  Sex: Female

DRUGS (1)
  1. DULOXETINE [Suspect]
     Active Substance: DULOXETINE
     Indication: Depression
     Dosage: FREQUENCY : TWICE A DAY;?

REACTIONS (4)
  - Confusional state [None]
  - Cognitive disorder [None]
  - Distractibility [None]
  - Agitation [None]

NARRATIVE: CASE EVENT DATE: 20230615
